FAERS Safety Report 8325049-8 (Version None)
Quarter: 2012Q2

REPORT INFORMATION
  Report Type: 
  Country: None (occurrence: None)
  Receive Date: 20120501
  Receipt Date: 20120424
  Transmission Date: 20120825
  Serious: Yes (Hospitalization, Disabling, Other)
  Sender: FDA-Public Use
  Company Number: US-PFIZER INC-2012042212

PATIENT
  Sex: Female

DRUGS (2)
  1. LIPITOR [Suspect]
     Dosage: UNK
  2. CELEBREX [Concomitant]
     Dosage: UNK

REACTIONS (4)
  - MOVEMENT DISORDER [None]
  - ACTIVITIES OF DAILY LIVING IMPAIRED [None]
  - INTERVERTEBRAL DISC OPERATION [None]
  - ARTHRITIS [None]
